FAERS Safety Report 12395756 (Version 1)
Quarter: 2016Q2

REPORT INFORMATION
  Report Type: Spontaneous
  Country: US (occurrence: US)
  Receive Date: 20160523
  Receipt Date: 20160523
  Transmission Date: 20160815
  Serious: No
  Sender: FDA-Public Use
  Company Number: US-BANPHARM-20164632

PATIENT
  Age: 87 Year
  Sex: Female
  Weight: 56.7 kg

DRUGS (1)
  1. MOTRIN IB [Suspect]
     Active Substance: IBUPROFEN
     Indication: TOOTHACHE
     Dosage: 2 DF, Q4H,
     Route: 048

REACTIONS (1)
  - Drug ineffective [Unknown]
